FAERS Safety Report 15165186 (Version 1)
Quarter: 2018Q3

REPORT INFORMATION
  Report Type: Spontaneous
  Country: US (occurrence: US)
  Receive Date: 20180719
  Receipt Date: 20180719
  Transmission Date: 20181010
  Serious: No
  Sender: FDA-Public Use
  Company Number: US-ASTRAZENECA-2018SE82468

PATIENT
  Sex: Male

DRUGS (1)
  1. FASENRA [Suspect]
     Active Substance: BENRALIZUMAB
     Indication: ASTHMA
     Dosage: 30 MG, EVERY 4 WEEKS FOR THE FIRST 2 DOSES, FOLLOWED BY ONCE EVERY 8 WEEKS THEREAFTER
     Route: 058
     Dates: start: 20180618

REACTIONS (3)
  - Hyperhidrosis [Unknown]
  - Fatigue [Unknown]
  - Palpitations [Unknown]
